FAERS Safety Report 6725964-2 (Version None)
Quarter: 2010Q2

REPORT INFORMATION
  Report Type: 
  Country: None (occurrence: None)
  Receive Date: 20100514
  Receipt Date: 20070906
  Transmission Date: 20101027
  Serious: Yes (Other)
  Sender: FDA-Public Use
  Company Number: PHHY2007BR03549

PATIENT
  Age: 62 Year
  Sex: Male
  Weight: 110 kg

DRUGS (3)
  1. DIOVAN AMLO [Suspect]
     Indication: HYPERTENSION
     Dosage: 1 DF, DAILY
     Route: 048
  2. DIOVAN AMLO [Suspect]
     Dosage: UNK
  3. DIOVAN [Suspect]
     Dosage: 160 MG, UNK

REACTIONS (3)
  - FLUID RETENTION [None]
  - NEPHROLITHIASIS [None]
  - OEDEMA PERIPHERAL [None]
